FAERS Safety Report 6656776-6 (Version None)
Quarter: 2010Q1

REPORT INFORMATION
  Report Type: 
  Country: None (occurrence: None)
  Receive Date: 20100329
  Receipt Date: 20100317
  Transmission Date: 20100710
  Serious: Yes (Death, Hospitalization, Other)
  Sender: FDA-Public Use
  Company Number: PHHY2010NG17359

PATIENT
  Age: 30 Year
  Sex: Female

DRUGS (7)
  1. BROMOCRIPTINE MESYLATE [Suspect]
     Indication: NEOPLASM MALIGNANT
     Route: 048
  2. AMPICLOX [Concomitant]
  3. METRONIDAZOLE [Concomitant]
  4. MEPERIDINE HCL [Concomitant]
  5. PROMETHAZINE [Concomitant]
  6. HYDRALAZINE HCL [Concomitant]
     Dosage: 5 MG STAT
     Route: 042
  7. HYDRALAZINE HCL [Concomitant]
     Dosage: 40 MG IN A LITRE OF 5% DEXTROSE WATER AT 10 DROPS/MIN IN QUARTER HOUR

REACTIONS (12)
  - ACCELERATED HYPERTENSION [None]
  - CAESAREAN SECTION [None]
  - CARDIAC ARREST [None]
  - DRUG EXPOSURE DURING PREGNANCY [None]
  - DYSPNOEA [None]
  - ENCEPHALOPATHY [None]
  - INTRACRANIAL PRESSURE INCREASED [None]
  - LOSS OF CONSCIOUSNESS [None]
  - MALARIA [None]
  - PREMATURE LABOUR [None]
  - PYREXIA [None]
  - RESTLESSNESS [None]
